FAERS Safety Report 19119524 (Version 1)
Quarter: 2021Q2

REPORT INFORMATION
  Report Type: Spontaneous
  Country: AR (occurrence: AR)
  Receive Date: 20210412
  Receipt Date: 20210412
  Transmission Date: 20210717
  Serious: Yes (Other)
  Sender: FDA-Public Use
  Company Number: AR-AMGEN-ARGSP2020141090

PATIENT
  Age: 82 Year
  Sex: Female

DRUGS (4)
  1. ENBREL [Suspect]
     Active Substance: ETANERCEPT
     Dosage: 50 MG, SOMETIMES IT WAS SHORTENED TO EVERY FOUR OR FIVE DAYS AND OTHER TIMES EVERY EIGHT OR NINE DAY
     Route: 065
  2. ENBREL [Suspect]
     Active Substance: ETANERCEPT
     Dosage: 50 MG, AT OUTBREAK TIMES, IT IS APPLIED EVERY 5 OR 6 DAYS
     Route: 065
  3. ENBREL [Suspect]
     Active Substance: ETANERCEPT
     Dosage: 50 MILLIGRAM, QWK
     Route: 065
  4. ENBREL [Suspect]
     Active Substance: ETANERCEPT
     Indication: RHEUMATOID ARTHRITIS
     Dosage: 50 MG, WEEKLY (1 WEEKLY DOSAGE)
     Route: 065
     Dates: start: 20110601

REACTIONS (3)
  - Deafness [Unknown]
  - Condition aggravated [Unknown]
  - Pain [Unknown]
